FAERS Safety Report 6641583-0 (Version None)
Quarter: 2010Q1

REPORT INFORMATION
  Report Type: 
  Country: None (occurrence: None)
  Receive Date: 20100317
  Receipt Date: 20100317
  Transmission Date: 20100710
  Serious: Yes (Hospitalization)
  Sender: FDA-Public Use
  Company Number: None

PATIENT
  Sex: Male
  Weight: 102.7 kg

DRUGS (2)
  1. CISPLATIN [Suspect]
     Dosage: 180 MG
     Dates: end: 20100308
  2. TAXOL [Suspect]
     Dosage: 405 MG
     Dates: end: 20100308

REACTIONS (2)
  - CATHETER SITE INFECTION [None]
  - TACHYCARDIA [None]
